FAERS Safety Report 14427604 (Version 2)
Quarter: 2018Q1

REPORT INFORMATION
  Report Type: Spontaneous
  Country: FR (occurrence: FR)
  Receive Date: 20180123
  Receipt Date: 20180329
  Transmission Date: 20180509
  Serious: Yes (Hospitalization, Disabling)
  Sender: FDA-Public Use
  Company Number: FR-GILEAD-2018-0317047

PATIENT
  Age: 45 Year
  Sex: Male

DRUGS (5)
  1. GENVOYA [Suspect]
     Active Substance: COBICISTAT\ELVITEGRAVIR\EMTRICITABINE\TENOFOVIR ALAFENAMIDE FUMARATE
     Indication: HIV INFECTION
     Dosage: UNK, TABLET
     Route: 065
     Dates: start: 201712
  2. ZOLPIDEM [Concomitant]
     Active Substance: ZOLPIDEM\ZOLPIDEM TARTRATE
  3. PAROXETINE. [Concomitant]
     Active Substance: PAROXETINE
  4. LORAZEPAM. [Concomitant]
     Active Substance: LORAZEPAM
  5. BACTRIM [Concomitant]
     Active Substance: SULFAMETHOXAZOLE\TRIMETHOPRIM

REACTIONS (4)
  - Depression [Unknown]
  - Nightmare [Unknown]
  - Insomnia [Unknown]
  - CD4 lymphocytes decreased [Unknown]
